FAERS Safety Report 8049587-0 (Version None)
Quarter: 2012Q1

REPORT INFORMATION
  Report Type: 
  Country: None (occurrence: None)
  Receive Date: 20120111
  Receipt Date: 20110907
  Transmission Date: 20120608
  Serious: No
  Sender: FDA-Public Use
  Company Number: AEUSA201100241

PATIENT
  Age: 58 Year
  Sex: Female

DRUGS (2)
  1. HYPERTET [Suspect]
     Indication: THERMAL BURN
     Dosage: 250 IU;1X;IM
     Route: 030
     Dates: start: 20110907, end: 20110907
  2. HYPERTET [Suspect]
     Indication: TETANUS IMMUNISATION
     Dosage: 250 IU;1X;IM
     Route: 030
     Dates: start: 20110907, end: 20110907

REACTIONS (1)
  - EXPIRED DRUG ADMINISTERED [None]
